FAERS Safety Report 10667617 (Version 2)
Quarter: 2015Q1

REPORT INFORMATION
  Report Type: Report from Study
  Country: US (occurrence: US)
  Receive Date: 20141222
  Receipt Date: 20150218
  Transmission Date: 20150720
  Serious: Yes (Other)
  Sender: FDA-Public Use
  Company Number: US-SA-2014SA173444

PATIENT
  Age: 12 Year
  Sex: Female
  Weight: 61.6 kg

DRUGS (5)
  1. CABAZITAXEL [Suspect]
     Active Substance: CABAZITAXEL
     Indication: NEOPLASM
     Route: 042
  2. CABAZITAXEL [Suspect]
     Active Substance: CABAZITAXEL
     Indication: NEOPLASM
     Route: 042
     Dates: start: 20141210, end: 20141210
  3. LEVETIRACETAM. [Concomitant]
     Active Substance: LEVETIRACETAM
     Indication: PROPHYLAXIS
     Route: 048
  4. ONDASETRON [Concomitant]
     Active Substance: ONDANSETRON
     Indication: PROPHYLAXIS
     Route: 048
  5. G-CSF [Suspect]
     Active Substance: GRANULOCYTE COLONY-STIMULATING FACTOR NOS
     Indication: NEOPLASM

REACTIONS (1)
  - Anaphylactic reaction [Recovered/Resolved]

NARRATIVE: CASE EVENT DATE: 20141210
